FAERS Safety Report 10499800 (Version 1)
Quarter: 2014Q4

REPORT INFORMATION
  Report Type: Spontaneous
  Country: US (occurrence: US)
  Receive Date: 20141006
  Receipt Date: 20141006
  Transmission Date: 20150528
  Serious: No
  Sender: FDA-Public Use
  Company Number: US-AMGEN INC.-USASP2014060997

PATIENT
  Age: 52 Year
  Sex: Female
  Weight: 49.89 kg

DRUGS (2)
  1. LEVOXYL [Concomitant]
     Active Substance: LEVOTHYROXINE SODIUM
     Dosage: UNK
  2. PROLIA [Suspect]
     Active Substance: DENOSUMAB
     Indication: PRODUCT USED FOR UNKNOWN INDICATION
     Dosage: Q6MO
     Route: 065
     Dates: start: 201402

REACTIONS (10)
  - Joint crepitation [Unknown]
  - Dyspepsia [Unknown]
  - Musculoskeletal stiffness [Unknown]
  - Rash [Unknown]
  - Muscle tightness [Unknown]
  - Dyspnoea [Unknown]
  - Musculoskeletal pain [Unknown]
  - Weight increased [Unknown]
  - Back pain [Unknown]
  - Fluid retention [Unknown]

NARRATIVE: CASE EVENT DATE: 201402
